FAERS Safety Report 5311201-2 (Version None)
Quarter: 2007Q2

REPORT INFORMATION
  Report Type: 
  Country: None (occurrence: None)
  Receive Date: 20070430
  Receipt Date: 20070410
  Transmission Date: 20071010
  Serious: Yes (Hospitalization)
  Sender: FDA-Public Use
  Company Number: JP-BAYER-200710240BYL

PATIENT
  Age: 50 Year
  Sex: Male
  Weight: 57 kg

DRUGS (6)
  1. BAY43-9006 [Suspect]
     Indication: RENAL CELL CARCINOMA STAGE UNSPECIFIED
     Dosage: TOTAL DAILY DOSE: 800 MG
     Route: 048
     Dates: start: 20050420, end: 20070328
  2. BAY43-9006 [Suspect]
     Dosage: TOTAL DAILY DOSE: 800 MG
     Route: 048
     Dates: start: 20070409
  3. LOPEMIN [Concomitant]
     Indication: DIARRHOEA
     Dosage: TOTAL DAILY DOSE: 2 MG
     Route: 048
     Dates: start: 20060620, end: 20070328
  4. LOXONIN [Concomitant]
     Indication: HEADACHE
     Dosage: TOTAL DAILY DOSE: 180 MG
     Route: 048
     Dates: start: 20070404
  5. BIOFERMIN R [Concomitant]
     Indication: DIARRHOEA
     Dosage: TOTAL DAILY DOSE: 12 MG
     Route: 048
     Dates: start: 20070404
  6. BIOFERMIN R [Concomitant]
     Dosage: TOTAL DAILY DOSE: 12 MG
     Route: 048
     Dates: start: 20070201, end: 20070328

REACTIONS (1)
  - DIVERTICULITIS [None]
